FAERS Safety Report 25945977 (Version 2)
Quarter: 2025Q4

REPORT INFORMATION
  Report Type: Spontaneous
  Country: US (occurrence: US)
  Receive Date: 20251021
  Receipt Date: 20251114
  Transmission Date: 20260117
  Serious: No
  Sender: ELI LILLY AND COMPANY
  Company Number: US-ELI_LILLY_AND_COMPANY-US202510022763

PATIENT
  Age: 29 Year
  Sex: Male

DRUGS (2)
  1. VERZENIO [Suspect]
     Active Substance: ABEMACICLIB
     Indication: Brain neoplasm malignant
     Dosage: 200 MG, BID
     Route: 048
     Dates: start: 20250919
  2. VERZENIO [Suspect]
     Active Substance: ABEMACICLIB
     Dosage: 200 MG, BID
     Route: 048

REACTIONS (7)
  - Rectal haemorrhage [Unknown]
  - Off label use [Unknown]
  - Memory impairment [Unknown]
  - Mood altered [Unknown]
  - Feeling abnormal [Unknown]
  - Constipation [Unknown]
  - Diarrhoea [Not Recovered/Not Resolved]
